FAERS Safety Report 4312881-0 (Version None)
Quarter: 2004Q1

REPORT INFORMATION
  Report Type: 
  Country: None (occurrence: None)
  Receive Date: 20040304
  Receipt Date: 20040227
  Transmission Date: 20041129
  Serious: Yes (Life-Threatening, Hospitalization)
  Sender: FDA-Public Use
  Company Number: STA-AE-04-MTX-081

PATIENT
  Sex: Male

DRUGS (5)
  1. METHOTREXATE (METHOTREXATE, TABLET) [Suspect]
     Indication: PSORIASIS
     Dosage: 15 MG 1X PER 1 WK; ORAL
     Route: 048
     Dates: start: 20031101, end: 20031217
  2. FUMARIC ACID (FUMARIC ACID) [Suspect]
     Indication: PSORIASIS
     Dosage: 30 MG 1X PER 1 DAY; ORAL
     Route: 048
     Dates: start: 20031212, end: 20031217
  3. LOSARTAN [Concomitant]
  4. BENDROFLUAZIDE [Concomitant]
  5. QUININE [Concomitant]

REACTIONS (6)
  - ANAEMIA [None]
  - HYPERCALCAEMIA [None]
  - LYMPHOPENIA [None]
  - MEAN CELL VOLUME DECREASED [None]
  - NEUTROPENIA [None]
  - RENAL FAILURE ACUTE [None]
